FAERS Safety Report 6511677-9 (Version None)
Quarter: 2009Q4

REPORT INFORMATION
  Report Type: 
  Country: None (occurrence: None)
  Receive Date: 20091222
  Receipt Date: 20090501
  Transmission Date: 20100525
  Serious: No
  Sender: FDA-Public Use
  Company Number: US-ASTRAZENECA-2009UW11176

PATIENT
  Age: 74 Year
  Sex: Female

DRUGS (9)
  1. CRESTOR [Suspect]
     Route: 048
     Dates: start: 20070101
  2. INSULIN [Concomitant]
  3. BABY ASPIRIN [Concomitant]
  4. PRAVACHOL [Concomitant]
  5. NAPROSYN [Concomitant]
  6. DIAVAN [Concomitant]
  7. XALATAN [Concomitant]
  8. BACTROBAN [Concomitant]
  9. DARVOCET [Concomitant]

REACTIONS (5)
  - ARTHRITIS [None]
  - HEADACHE [None]
  - NECK PAIN [None]
  - OEDEMA PERIPHERAL [None]
  - TOOTHACHE [None]
